FAERS Safety Report 10253109 (Version 1)
Quarter: 2014Q2

REPORT INFORMATION
  Report Type: Spontaneous
  Country: US (occurrence: US)
  Receive Date: 20140623
  Receipt Date: 20140623
  Transmission Date: 20141212
  Serious: Yes (Hospitalization)
  Sender: FDA-Public Use
  Company Number: US-GLAXOSMITHKLINE-A1077116A

PATIENT
  Age: 65 Year
  Sex: Female

DRUGS (15)
  1. ADVAIR [Suspect]
     Indication: CHRONIC OBSTRUCTIVE PULMONARY DISEASE
     Dosage: 1PUFF TWICE PER DAY
     Route: 055
  2. SPIRIVA [Concomitant]
  3. NEBULIZER [Concomitant]
  4. SINGULAIR [Concomitant]
  5. ZOLOFT [Concomitant]
  6. OMEPRAZOLE [Concomitant]
  7. MAGNESIUM [Concomitant]
  8. VITAMIN D3 [Concomitant]
  9. IRON [Concomitant]
  10. ZYRTEC [Concomitant]
  11. BUSPAR [Concomitant]
  12. FLUTICASONE NASAL SPRAY [Concomitant]
  13. MULTIVITAMIN [Concomitant]
  14. WELLBUTRIN [Concomitant]
  15. NEBULIZER [Concomitant]

REACTIONS (5)
  - Lung infection [Recovering/Resolving]
  - Dyspnoea [Recovering/Resolving]
  - Malaise [Recovering/Resolving]
  - Unable to afford prescribed medication [Unknown]
  - Drug administration error [Unknown]
